FAERS Safety Report 10342644 (Version 3)
Quarter: 2014Q3

REPORT INFORMATION
  Report Type: Spontaneous
  Country: AU (occurrence: AU)
  Receive Date: 20140725
  Receipt Date: 20140731
  Transmission Date: 20150326
  Serious: Yes (Hospitalization, Other)
  Sender: FDA-Public Use
  Company Number: AU-ALLERGAN-1416420US

PATIENT
  Age: 74 Year
  Sex: Male

DRUGS (3)
  1. FML [Suspect]
     Active Substance: FLUOROMETHOLONE
     Indication: PRODUCT USED FOR UNKNOWN INDICATION
     Route: 047
  2. XALACOM [Suspect]
     Active Substance: LATANOPROST\TIMOLOL MALEATE
     Indication: PRODUCT USED FOR UNKNOWN INDICATION
  3. AZOPT [Suspect]
     Active Substance: BRINZOLAMIDE
     Indication: PRODUCT USED FOR UNKNOWN INDICATION
     Dosage: UNK
     Route: 047
     Dates: start: 201310

REACTIONS (7)
  - Blood pressure increased [Unknown]
  - Cerebrovascular accident [Unknown]
  - Asthenia [Unknown]
  - Paraesthesia [Unknown]
  - Limb discomfort [Unknown]
  - Fatigue [Unknown]
  - Dry mouth [Unknown]
